FAERS Safety Report 6729470-0 (Version None)
Quarter: 2010Q2

REPORT INFORMATION
  Report Type: 
  Country: None (occurrence: None)
  Receive Date: 20100518
  Receipt Date: 20100506
  Transmission Date: 20101027
  Serious: No
  Sender: FDA-Public Use
  Company Number: US-BIOGENIDEC-2010BI015549

PATIENT
  Sex: Female

DRUGS (1)
  1. TYSABRI [Suspect]
     Indication: MULTIPLE SCLEROSIS
     Route: 042
     Dates: start: 20100320

REACTIONS (13)
  - ASTHENIA [None]
  - DYSPNOEA EXERTIONAL [None]
  - EYE SWELLING [None]
  - FATIGUE [None]
  - HYPOAESTHESIA [None]
  - INSOMNIA [None]
  - MOOD SWINGS [None]
  - OCULAR HYPERAEMIA [None]
  - OCULAR ICTERUS [None]
  - RASH GENERALISED [None]
  - RASH PRURITIC [None]
  - STRESS [None]
  - VISION BLURRED [None]
